FAERS Safety Report 9226212 (Version 1)
Quarter: 2013Q2

REPORT INFORMATION
  Report Type: Spontaneous
  Country: DE (occurrence: DE)
  Receive Date: 20130411
  Receipt Date: 20130411
  Transmission Date: 20140414
  Serious: Yes (Other)
  Sender: FDA-Public Use
  Company Number: GXKR2013DE001415

PATIENT
  Sex: Male

DRUGS (1)
  1. LOPERAMID AKUT 1A PHARMA [Suspect]
     Dosage: UNK
     Route: 048
     Dates: start: 20120301, end: 20130325

REACTIONS (2)
  - Drug abuse [Unknown]
  - Treatment noncompliance [None]
